FAERS Safety Report 16549798 (Version 1)
Quarter: 2019Q3

REPORT INFORMATION
  Report Type: Spontaneous
  Country: US (occurrence: US)
  Receive Date: 20190528
  Receipt Date: 20190528
  Transmission Date: 20191004
  Serious: No
  Sender: FDA-Public Use
  Company Number: None

PATIENT
  Age: 71 Year
  Sex: Female

DRUGS (1)
  1. TETRABENAZIN TAB 25MG [Suspect]
     Active Substance: TETRABENAZINE

REACTIONS (3)
  - Therapeutic product effect decreased [None]
  - Bruxism [None]
  - Tremor [None]

NARRATIVE: CASE EVENT DATE: 20190520
